FAERS Safety Report 20988711 (Version 2)
Quarter: 2022Q3

REPORT INFORMATION
  Report Type: Spontaneous
  Country: JP (occurrence: JP)
  Receive Date: 20220621
  Receipt Date: 20220714
  Transmission Date: 20221027
  Serious: Yes (Other)
  Sender: FDA-Public Use
  Company Number: JP-PFIZER INC-PV202200005293

PATIENT
  Age: 12 Year
  Sex: Male

DRUGS (4)
  1. CIBINQO [Suspect]
     Active Substance: ABROCITINIB
     Indication: Dermatitis atopic
     Dosage: 200 MG, DAILY
     Route: 048
     Dates: start: 20220607, end: 20220621
  2. ZADITEN [Concomitant]
     Active Substance: KETOTIFEN FUMARATE
     Dosage: 1 MG, 2X/DAY
     Route: 048
     Dates: start: 20220530, end: 20220630
  3. JUMIHAIDOKUTO [ARALIA CORDATA RHIZOME;BUPLEURUM FALCATUM ROOT;CNIDIUM [Concomitant]
     Dosage: 12 DF, DAILY
     Route: 048
     Dates: start: 20220530, end: 20220630
  4. MINOCYCLINE HYDROCHLORIDE [Concomitant]
     Active Substance: MINOCYCLINE HYDROCHLORIDE
     Dosage: 500 MG, 2X/DAY
     Route: 048
     Dates: start: 20220530, end: 20220615

REACTIONS (1)
  - Herpes zoster [Recovered/Resolved]

NARRATIVE: CASE EVENT DATE: 20220621
